FAERS Safety Report 6529929-5 (Version None)
Quarter: 2010Q1

REPORT INFORMATION
  Report Type: 
  Country: None (occurrence: None)
  Receive Date: 20100107
  Receipt Date: 20100105
  Transmission Date: 20100710
  Serious: Yes (Death)
  Sender: FDA-Public Use
  Company Number: B0623678A

PATIENT
  Sex: Female
  Weight: 67 kg

DRUGS (2)
  1. AUGMENTIN [Suspect]
     Indication: ERYSIPELAS
     Dosage: 1.2G THREE TIMES PER DAY
     Route: 042
     Dates: start: 20090929, end: 20091002
  2. AUGMENTIN [Suspect]
     Dosage: 625MG THREE TIMES PER DAY
     Route: 048
     Dates: start: 20091003, end: 20091012

REACTIONS (3)
  - HEPATITIS CHOLESTATIC [None]
  - JAUNDICE CHOLESTATIC [None]
  - PRURITUS [None]
